FAERS Safety Report 18365682 (Version 1)
Quarter: 2020Q4

REPORT INFORMATION
  Report Type: Spontaneous
  Country: US (occurrence: US)
  Receive Date: 20201009
  Receipt Date: 20201009
  Transmission Date: 20210114
  Serious: Yes (Hospitalization)
  Sender: FDA-Public Use
  Company Number: None

PATIENT
  Age: 28 Year
  Sex: Female

DRUGS (1)
  1. COPAXONE [Suspect]
     Active Substance: GLATIRAMER ACETATE
     Indication: MULTIPLE SCLEROSIS
     Route: 058
     Dates: start: 202007

REACTIONS (7)
  - Migraine [None]
  - Alopecia [None]
  - Pyrexia [None]
  - Syncope [None]
  - Weight decreased [None]
  - Mood swings [None]
  - Infection [None]

NARRATIVE: CASE EVENT DATE: 20201004
